FAERS Safety Report 9182728 (Version 1)
Quarter: 2012Q4

REPORT INFORMATION
  Report Type: 
  Country: AU (occurrence: AU)
  Receive Date: 20121031
  Receipt Date: 20121031
  Transmission Date: 20130627
  Serious: Yes (Death)
  Sender: FDA-Public Use
  Company Number: AU-B.I. PHARMACEUTICALS,INC./RIDGEFIELD-2012-EU-05387GD

PATIENT

DRUGS (1)
  1. DABIGATRAN ETEXILATE [Suspect]

REACTIONS (3)
  - Pneumonia [Fatal]
  - Renal failure [Fatal]
  - Gastrointestinal haemorrhage [Fatal]
